FAERS Safety Report 4633711-3 (Version None)
Quarter: 2005Q2

REPORT INFORMATION
  Report Type: 
  Country: None (occurrence: None)
  Receive Date: 20050331
  Receipt Date: 20050106
  Transmission Date: 20051028
  Serious: Yes (Other)
  Sender: FDA-Public Use
  Company Number: 200510100BCC

PATIENT
  Age: 64 Year
  Sex: Male

DRUGS (7)
  1. ALEVE (CAPLET) [Suspect]
     Indication: CHEST WALL PAIN
     Dosage: 220 MG, QD, ORAL
     Route: 048
     Dates: start: 20041101, end: 20041201
  2. LISINOPRIL [Concomitant]
  3. HYDROCHLOROTHIAZIDE [Concomitant]
  4. NORVASC [Concomitant]
  5. SYNTHROID [Concomitant]
  6. PRAVACHOL [Concomitant]
  7. IBUPROFEN [Concomitant]

REACTIONS (2)
  - ERYTHEMA MULTIFORME [None]
  - HISTAMINE LEVEL INCREASED [None]
